FAERS Safety Report 11914122 (Version 1)
Quarter: 2016Q1

REPORT INFORMATION
  Report Type: Spontaneous
  Country: US (occurrence: US)
  Receive Date: 20160113
  Receipt Date: 20160113
  Transmission Date: 20160526
  Serious: Yes (Hospitalization, Other)
  Sender: FDA-Public Use
  Company Number: US-APOTEX-2016AP005096

PATIENT
  Age: 14 Year
  Sex: Male

DRUGS (1)
  1. VALPROIC ACID ORAL SOLUTION USP [Suspect]
     Active Substance: VALPROIC ACID
     Indication: EPILEPSY
     Route: 065

REACTIONS (1)
  - Fanconi syndrome [Recovered/Resolved]
